FAERS Safety Report 9948974 (Version 1)
Quarter: 2014Q1

REPORT INFORMATION
  Report Type: Spontaneous
  Country: US (occurrence: None)
  Receive Date: 20140122
  Receipt Date: 20140122
  Transmission Date: 20141002
  Serious: Yes (Other)
  Sender: FDA-Public Use
  Company Number: AEGR000237

PATIENT
  Age: 40 Year
  Sex: Male
  Weight: 106.1 kg

DRUGS (12)
  1. JUXTAPID [Suspect]
     Indication: TYPE IIA HYPERLIPIDAEMIA
     Route: 048
     Dates: start: 20131210
  2. TRAZODONE (TRAZODONE) [Concomitant]
  3. ULTRAM (TRAMADOL HYDROCHLORIDE) [Concomitant]
  4. PLAVIX (CLOPIDOGREL BISULFATE) (CLOPIDOGREL BISULFATE) [Concomitant]
  5. TESTOSTERONE CYPIONATE (TESTOSTERONE CIPIONATE) [Concomitant]
  6. PAXIL (PAROXETINE HYDROCHLORIDE) [Concomitant]
  7. XANAX (ALPRAZOLAM) [Concomitant]
  8. SOMA (CARISOPRODOL) [Concomitant]
  9. VYTORIN (EZETIMIBE, SIMVASTATIN) [Concomitant]
  10. COQ 10 (UBIDECARENONE) [Concomitant]
  11. LASIX (FUROSEMIDE SODIUM) [Concomitant]
  12. SUBOXONE (BUPRENORPHINE HYDROCHLORIDE, NALOXONE HYDROCHLORIDE) [Concomitant]

REACTIONS (1)
  - Dyspepsia [None]
